FAERS Safety Report 12231360 (Version 2)
Quarter: 2016Q2

REPORT INFORMATION
  Report Type: Spontaneous
  Country: CN (occurrence: CN)
  Receive Date: 20160401
  Receipt Date: 20160408
  Transmission Date: 20160815
  Serious: Yes (Death, Other)
  Sender: FDA-Public Use
  Company Number: CN-PFIZER INC-2016182728

PATIENT
  Age: 2 Month
  Sex: Male
  Weight: 4 kg

DRUGS (8)
  1. COMPOUND GLYCYRRHIZIN [Concomitant]
     Dosage: 10 ML, 1X/DAY IN 5% GLUCOSE INJECTION 20 ML
     Dates: start: 20141031
  2. FLUCONAZOLE. [Suspect]
     Active Substance: FLUCONAZOLE
     Indication: CANDIDA INFECTION
     Dosage: 24 MG, 2X/DAY
     Route: 041
     Dates: start: 20141106, end: 20141112
  3. AMIKACIN [Concomitant]
     Active Substance: AMIKACIN
     Dosage: 0.03 G, 2X/DAY IN 0.9% NACL 30 ML
     Route: 041
     Dates: start: 20141031
  4. CHLORPHENIRAMINE. [Concomitant]
     Active Substance: CHLORPHENIRAMINE
     Dosage: 0.4 MG, 3X/DAY
     Route: 048
     Dates: start: 20141031
  5. VORICONAZOLE. [Suspect]
     Active Substance: VORICONAZOLE
     Indication: CANDIDA INFECTION
     Dosage: 28 MG, 2X/DAY IN 5% GLUCOSE INJECTION 15 ML
     Route: 041
     Dates: start: 20141112, end: 20141113
  6. METHYLPREDNISOLONE. [Concomitant]
     Active Substance: METHYLPREDNISOLONE
     Dosage: 20 MG, 2X/DAY IN 10% GLUCOSE INJECTION 20 ML
     Route: 041
     Dates: start: 20141031, end: 20141104
  7. METHYLPREDNISOLONE. [Concomitant]
     Active Substance: METHYLPREDNISOLONE
     Dosage: 8 MG, 2X/DAY
     Route: 041
     Dates: start: 20141104, end: 20141106
  8. METHYLPREDNISOLONE. [Concomitant]
     Active Substance: METHYLPREDNISOLONE
     Dosage: 8 MG, 1X/DAY
     Route: 041
     Dates: start: 20141106

REACTIONS (2)
  - Death [Fatal]
  - Acute hepatic failure [Unknown]

NARRATIVE: CASE EVENT DATE: 20141111
